FAERS Safety Report 13062591 (Version 2)
Quarter: 2016Q4

REPORT INFORMATION
  Report Type: Spontaneous
  Country: US (occurrence: US)
  Receive Date: 20161226
  Receipt Date: 20161227
  Transmission Date: 20170207
  Serious: Yes (Other)
  Sender: FDA-Public Use
  Company Number: PHHY2016US173263

PATIENT
  Age: 33 Week
  Weight: 1.25 kg

DRUGS (1)
  1. METHOTREXATE. [Suspect]
     Active Substance: METHOTREXATE
     Indication: FOETAL EXPOSURE DURING PREGNANCY
     Route: 064

REACTIONS (5)
  - Pseudohermaphroditism [Unknown]
  - Premature baby [Unknown]
  - Limb deformity [Unknown]
  - Craniosynostosis [Recovering/Resolving]
  - Foetal exposure during pregnancy [Unknown]
